FAERS Safety Report 7967356-4 (Version None)
Quarter: 2011Q4

REPORT INFORMATION
  Report Type: 
  Country: None (occurrence: None)
  Receive Date: 20111209
  Receipt Date: 20111125
  Transmission Date: 20120403
  Serious: Yes (Death)
  Sender: FDA-Public Use
  Company Number: AT-MYLANLABS-2011S1024783

PATIENT
  Age: 73 Year
  Sex: Male

DRUGS (4)
  1. ENALAPRIL MALEATE [Suspect]
     Route: 065
  2. AMILORIDE HCL AND HYDROCHLOROTHIAZIDE [Suspect]
     Dosage: 50/5MG ONCE DAILY
     Route: 065
  3. FUROSEMIDE [Suspect]
     Route: 065
  4. SPIRONOLACTONE [Suspect]
     Route: 065

REACTIONS (3)
  - HYPERKALAEMIA [None]
  - RENAL FAILURE CHRONIC [None]
  - CARDIAC ARREST [None]
